FAERS Safety Report 17073892 (Version 2)
Quarter: 2019Q4

REPORT INFORMATION
  Report Type: Spontaneous
  Country: CA (occurrence: CA)
  Receive Date: 20191126
  Receipt Date: 20191205
  Transmission Date: 20200122
  Serious: Yes (Other)
  Sender: FDA-Public Use
  Company Number: CA-ORION CORPORATION ORION PHARMA-TREX2019-5661

PATIENT
  Age: 69 Year
  Sex: Male

DRUGS (2)
  1. HYDROXYCHLOROQUINE SULFATE. [Concomitant]
     Active Substance: HYDROXYCHLOROQUINE SULFATE
     Route: 065
     Dates: start: 20170221, end: 20180618
  2. METHOTREXATE (TRADE NAME UNKNOWN) [Suspect]
     Active Substance: METHOTREXATE
     Indication: PRODUCT USED FOR UNKNOWN INDICATION
     Route: 065
     Dates: start: 20161212, end: 20180321

REACTIONS (4)
  - Vein rupture [Recovered/Resolved]
  - Pulmonary fibrosis [Unknown]
  - Drug hypersensitivity [Unknown]
  - Sleep disorder [Unknown]
